FAERS Safety Report 7937639-2 (Version None)
Quarter: 2011Q4

REPORT INFORMATION
  Report Type: 
  Country: None (occurrence: None)
  Receive Date: 20111123
  Receipt Date: 20111110
  Transmission Date: 20120403
  Serious: Yes (Other)
  Sender: FDA-Public Use
  Company Number: PHEH2011US07356

PATIENT
  Sex: Female
  Weight: 44.5 kg

DRUGS (14)
  1. LOPERAMIDE HCL [Concomitant]
     Indication: DIARRHOEA
     Dosage: 2 MG, DAILY
     Route: 048
  2. COLESTID [Concomitant]
     Indication: DIARRHOEA
     Dosage: 1 G DAILY
     Route: 048
  3. LORTAB [Concomitant]
     Indication: PAIN
  4. ROLAIDS [Concomitant]
     Indication: DYSPEPSIA
  5. VITAMIN B-12 [Concomitant]
     Indication: VITAMIN B12 DEFICIENCY
  6. PRILOSEC [Concomitant]
     Indication: DYSPEPSIA
     Dosage: 40 MG, DAILY
     Route: 048
  7. ROCALTROL [Concomitant]
     Dosage: 0.25 MG, DAILY
     Route: 048
  8. OXYCODONE HCL [Concomitant]
     Indication: PAIN
  9. SANDOSTATIN LAR [Suspect]
     Indication: DIARRHOEA
     Dosage: 60 MG EVERY 4 WEEKS
     Route: 030
     Dates: start: 20111019
  10. VIACTIV                                 /CAN/ [Concomitant]
     Dosage: 1 DF, DAILY
     Route: 048
  11. MICRO-K [Concomitant]
     Dosage: 40 MEQ, DAILY
     Route: 048
  12. MULTIVITAMIN [Concomitant]
     Dosage: 1 DF, DAILY
     Route: 048
  13. AUGMENTIN '125' [Concomitant]
  14. MAGNESIUM SULFATE [Concomitant]

REACTIONS (2)
  - BLOOD PRESSURE DECREASED [None]
  - INCORRECT ROUTE OF DRUG ADMINISTRATION [None]
